FAERS Safety Report 5649552-4 (Version None)
Quarter: 2008Q1

REPORT INFORMATION
  Report Type: 
  Country: None (occurrence: None)
  Receive Date: 20080304
  Receipt Date: 20080225
  Transmission Date: 20080703
  Serious: Yes (Hospitalization, Other)
  Sender: FDA-Public Use
  Company Number: BR-PFIZER INC-2003116941

PATIENT
  Sex: Female

DRUGS (6)
  1. ATORVASTATIN CALCIUM [Suspect]
     Indication: DYSLIPIDAEMIA
     Route: 048
     Dates: start: 20030101, end: 20031101
  2. ATORVASTATIN CALCIUM [Suspect]
     Indication: BLOOD CHOLESTEROL INCREASED
  3. LOSARTAN POTASSIUM AND HYDROCHLOROTHIAZIDE [Concomitant]
     Route: 048
  4. ALL OTHER THERAPEUTIC PRODUCTS [Concomitant]
     Route: 048
  5. ZANIDIP [Concomitant]
     Route: 048
  6. ATENSINA [Concomitant]
     Route: 048

REACTIONS (5)
  - ARRHYTHMIA [None]
  - COUGH [None]
  - DIABETES MELLITUS [None]
  - HEART RATE INCREASED [None]
  - HYPERTENSION [None]
